APPROVED DRUG PRODUCT: BUTALBITAL AND ACETAMINOPHEN
Active Ingredient: ACETAMINOPHEN; BUTALBITAL
Strength: 300MG;50MG
Dosage Form/Route: CAPSULE;ORAL
Application: A213115 | Product #001 | TE Code: AA
Applicant: GRANULES PHARMACEUTICALS INC
Approved: Nov 22, 2019 | RLD: No | RS: No | Type: RX